FAERS Safety Report 21922355 (Version 1)
Quarter: 2023Q1

REPORT INFORMATION
  Report Type: Report from Study
  Country: US (occurrence: US)
  Receive Date: 20230128
  Receipt Date: 20230128
  Transmission Date: 20230417
  Serious: No
  Sender: FDA-Public Use
  Company Number: US-002147023-NVSC2023US019341

PATIENT
  Sex: Male

DRUGS (7)
  1. LIORESAL [Suspect]
     Active Substance: BACLOFEN
     Indication: Stiff person syndrome
     Dosage: 10 MG, TID
     Route: 048
  2. CLOBETASOL [Suspect]
     Active Substance: CLOBETASOL
     Indication: Psoriasis
     Dosage: UNK UNK, BID
     Route: 061
  3. CLONIDINE HYDROCHLORIDE [Suspect]
     Active Substance: CLONIDINE HYDROCHLORIDE
     Indication: Psoriasis
     Dosage: 0.1 MG
     Route: 048
  4. GABAPENTIN [Suspect]
     Active Substance: GABAPENTIN
     Indication: Psoriasis
     Dosage: 600 MG, TID
     Route: 048
  5. HYDROCHLOROTHIAZIDE [Suspect]
     Active Substance: HYDROCHLOROTHIAZIDE
     Indication: Hypertension
     Dosage: 12.5 MG, QD
     Route: 048
  6. METOPROLOL SUCCINATE [Suspect]
     Active Substance: METOPROLOL SUCCINATE
     Indication: Psoriasis
     Dosage: 200 MG, QD
     Route: 048
  7. NITROGLYCERIN [Suspect]
     Active Substance: NITROGLYCERIN
     Indication: Pain
     Route: 048

REACTIONS (2)
  - Psoriasis [Unknown]
  - Drug ineffective [Unknown]
